FAERS Safety Report 4796349-3 (Version None)
Quarter: 2005Q4

REPORT INFORMATION
  Report Type: 
  Country: None (occurrence: None)
  Receive Date: 20051007
  Receipt Date: 20050927
  Transmission Date: 20060501
  Serious: Yes (Life-Threatening)
  Sender: FDA-Public Use
  Company Number: DEWYE009027SEP05

PATIENT
  Age: 71 Year
  Sex: Male

DRUGS (43)
  1. PIPERACILLIN [Suspect]
     Indication: SEPSIS
     Dosage: 4 G 3X PER 1 DAY; INTRAVENOUS, 4 G 3X PER 1 DAY; INTRAVENOUS
     Route: 042
     Dates: start: 20050216, end: 20050223
  2. PIPERACILLIN [Suspect]
     Indication: SEPSIS
     Dosage: 4 G 3X PER 1 DAY; INTRAVENOUS, 4 G 3X PER 1 DAY; INTRAVENOUS
     Route: 042
     Dates: start: 20050226, end: 20050226
  3. PIPERACILLIN [Suspect]
     Indication: SEPSIS
     Dosage: 4 G 3X PER 1 DAY; INTRAVENOUS, 4 G 3X PER 1 DAY; INTRAVENOUS
     Route: 042
     Dates: start: 20050227, end: 20050228
  4. ACC (ACETYLCYSTEINE, , 0) [Suspect]
  5. ACICLOVIR (ACICLOVIR, , 0) [Suspect]
  6. ACTRAPID PENFIL (INSULIN HUMAN, , 0) [Suspect]
  7. ANTRA (OMEPRAZOLE, , 0) [Suspect]
  8. ASS-RATIOPHARM (ACETYLSALICYLIC ACID, , 0) [Suspect]
  9. AT-III (ANTITHROMBIN III, , 0) [Suspect]
  10. BELOC ZOK (METOPROLOL SUCCINATE, , 0) [Suspect]
  11. CLEXANE (HEPARIN-FRACTION, SODIUM SALT, , 0) [Suspect]
  12. CLINOMEL (AMINO ACIDS/CARBOHYDRATES/MINERALS/VITAMINS, , 0) [Suspect]
  13. COMBACTAM (SULBACTAM SODIUM , , 0) [Suspect]
  14. DELIX (RAMIPRIL, , 0) [Suspect]
  15. DIAZEPAM [Suspect]
  16. DIGITOXIN (DIGITOXIN, , 0) [Suspect]
  17. DOBUTAMINE (DOBUTAMINE, , 0) [Suspect]
  18. DORMICUM (MIDAZOLAM MALEATE, , 0) [Suspect]
  19. DYNEXAN (ALUMINIUM FORMATE/ARNICA MONTANA/CHAMOMILE/SALVIA/TETRACAINE [Suspect]
  20. EBRANTIL (URAPIDIL, , 0) [Suspect]
  21. ERYTHROMYCIN (ERYTHROMYCIN, , 0) [Suspect]
  22. ETOMIDATE (ETOMIDATE, , 0) [Suspect]
  23. FALICARD (VERAPAMIL HYDROCHLORIDE, , 0) [Suspect]
  24. HYDROCORTISONE [Suspect]
  25. IRENAT (SODIUM PERCHLORATE, , 0) [Suspect]
  26. JONOSTERIL (CALCIUM ACETATE/MAGNESIUM ACETATE/POTASSIUM ACETATE/SODIUM [Suspect]
  27. LASIX (FUROSEMIDE, , 0) [Suspect]
  28. MCP-RATIOPHARM (METOCLOPRAMIDE HYDROCHLORIDE, , 0) [Suspect]
  29. MOVICOL (MACROGOL/POTTASIUM CHLORIDE/SODIUM BICARBONATE/SODIUM CHLORID [Suspect]
  30. NEXIUM [Suspect]
  31. NITROGLICERINA (GLYCERYL TRINITRATE, , 0) [Suspect]
  32. NORADRENALINE (NOREPHINEPHRINE, , 0) [Suspect]
  33. NORVASC [Suspect]
  34. NOVAMINSULFON-RATIOPHARM (METAMIZOLE SODIUM, , 0) [Suspect]
  35. POTASSIUM (POTASSIUM, , 0) [Suspect]
  36. PREDNISOLONE [Suspect]
  37. PYOCTANINE BOZI (BORIC ACID/METHYLROSANILINIUM CHLORIDE/ZINC OXIDE, , [Suspect]
  38. ROCEPHIN [Suspect]
  39. SALBUTOL (SALBUTAMOL, , 0) [Suspect]
  40. SUFENTA [Suspect]
  41. TARGOCID [Suspect]
  42. TRICLOSAN (TRICLOSAN, , 0) [Suspect]
  43. VANCOMYCIN [Suspect]

REACTIONS (7)
  - AGRANULOCYTOSIS [None]
  - DERMATITIS BULLOUS [None]
  - DRUG ERUPTION [None]
  - HAEMOGLOBIN DECREASED [None]
  - HEPATITIS TOXIC [None]
  - LYMPHOCYTE PERCENTAGE INCREASED [None]
  - WHITE BLOOD CELL COUNT DECREASED [None]
